FAERS Safety Report 7602059-7 (Version None)
Quarter: 2011Q3

REPORT INFORMATION
  Report Type: 
  Country: None (occurrence: None)
  Receive Date: 20110711
  Receipt Date: 20110701
  Transmission Date: 20111222
  Serious: Yes (Other)
  Sender: FDA-Public Use
  Company Number: CHPA2011US08958

PATIENT
  Age: 57 Year
  Sex: Female

DRUGS (6)
  1. MAALOX ADV MAXIMUM STRENGTH ANTACID/ANTIGAS [Suspect]
     Indication: HIATUS HERNIA
     Dosage: UNK, PRN
     Route: 048
  2. MAALOX TOTAL RELIEF [Suspect]
     Indication: HIATUS HERNIA
     Dosage: UNK, UNK
     Route: 048
  3. MESTINON [Concomitant]
     Dosage: UNK, UNK
  4. PREDNISONE [Concomitant]
     Dosage: UNK, UNK
  5. IMURAN [Concomitant]
     Dosage: UNK, UNK
  6. DEXILANT [Concomitant]
     Dosage: UNK

REACTIONS (4)
  - CHOLECYSTECTOMY [None]
  - OFF LABEL USE [None]
  - DIARRHOEA [None]
  - THERAPEUTIC RESPONSE UNEXPECTED [None]
